FAERS Safety Report 17218765 (Version 1)
Quarter: 2019Q4

REPORT INFORMATION
  Report Type: Spontaneous
  Country: BE (occurrence: BE)
  Receive Date: 20191231
  Receipt Date: 20191231
  Transmission Date: 20200122
  Serious: Yes (Other)
  Sender: FDA-Public Use
  Company Number: BE-JNJFOC-20191247523

PATIENT
  Age: 62 Year
  Sex: Female

DRUGS (10)
  1. D-CURE [Concomitant]
     Active Substance: CHOLECALCIFEROL
     Indication: OSTEOPOROSIS PROPHYLAXIS
     Dosage: DURING 1 WEEK THEN 25000 IU 1 X / WEEK DURING 4 WEEKS
     Route: 048
     Dates: start: 20191122
  2. DAKTARIN DERMATOLOGICO [Concomitant]
     Route: 003
     Dates: start: 20191122
  3. HEXTRIL [Concomitant]
     Active Substance: HEXETIDINE
     Route: 050
     Dates: start: 20191122
  4. MIRTAZAPINE EG [Concomitant]
     Indication: DEPRESSION
     Route: 048
     Dates: start: 20191124
  5. RIVAROXABAN [Suspect]
     Active Substance: RIVAROXABAN
     Indication: ANTICOAGULANT THERAPY
     Dosage: 20 MG, QD
     Route: 048
     Dates: start: 20191122, end: 20191204
  6. PROLOPA [Concomitant]
     Active Substance: BENSERAZIDE\LEVODOPA
     Indication: PARKINSON^S DISEASE
     Dosage: 250 MG, UNK
     Dates: start: 20191024
  7. MACROGOL W/POTASSIUM CHLORIDE/SODIUM CITRATE [Concomitant]
     Indication: CONSTIPATION
     Route: 048
     Dates: start: 20191012
  8. ALDACTONE [Concomitant]
     Active Substance: SPIRONOLACTONE
     Indication: DIURETIC THERAPY
     Dates: start: 20191122
  9. DAFALGAN FORTE [Concomitant]
     Indication: PAIN
     Route: 048
     Dates: start: 20191122
  10. AUGMENTIN [Concomitant]
     Active Substance: AMOXICILLIN\CLAVULANATE POTASSIUM
     Indication: ANTIBIOTIC PROPHYLAXIS
     Dates: start: 20191122, end: 20191126

REACTIONS (2)
  - Drug abuse [Unknown]
  - Overdose [Unknown]

NARRATIVE: CASE EVENT DATE: 20191122
